FAERS Safety Report 8107936-9 (Version None)
Quarter: 2012Q1

REPORT INFORMATION
  Report Type: 
  Country: None (occurrence: None)
  Receive Date: 20120202
  Receipt Date: 20120124
  Transmission Date: 20120608
  Serious: Yes (Hospitalization, Disabling)
  Sender: FDA-Public Use
  Company Number: US-MERCK-1108USA01353

PATIENT
  Age: 55 Year
  Sex: Female
  Weight: 47 kg

DRUGS (3)
  1. FOSAMAX [Suspect]
     Indication: OSTEOPENIA
     Route: 048
     Dates: start: 20031121, end: 20090101
  2. ONE-A-DAY ESSENTIAL VITAMINS [Concomitant]
     Route: 065
  3. FOSAMAX [Suspect]
     Indication: OSTEOPOROSIS
     Route: 048
     Dates: start: 20031121, end: 20090101

REACTIONS (15)
  - HAEMORRHOIDS [None]
  - RECTAL POLYP [None]
  - UTERINE LEIOMYOMA [None]
  - ROTATOR CUFF SYNDROME [None]
  - PELVIC PAIN [None]
  - FEMUR FRACTURE [None]
  - MENISCUS LESION [None]
  - JOINT INJURY [None]
  - HAEMATOCHEZIA [None]
  - ESSENTIAL HYPERTENSION [None]
  - ILIOTIBIAL BAND SYNDROME [None]
  - DERMATITIS [None]
  - HERPES ZOSTER [None]
  - MUSCLE INJURY [None]
  - FALL [None]
